FAERS Safety Report 10038549 (Version 1)
Quarter: 2014Q1

REPORT INFORMATION
  Report Type: Spontaneous
  Country: US (occurrence: None)
  Receive Date: 20140306
  Receipt Date: 20140306
  Transmission Date: 20141002
  Serious: Yes (Other)
  Sender: FDA-Public Use
  Company Number: 163-21880-13111757

PATIENT
  Age: 56 Year
  Sex: Female

DRUGS (9)
  1. REVLIMID(LENALIDOMIDE)(CAPSULES) [Suspect]
     Indication: PLASMA CELL MYELOMA
     Route: 048
     Dates: start: 20130920, end: 20131106
  2. DEXILANT(DEXLANSOPRAZOLE) [Concomitant]
  3. BUPROPION(BUPROPION) [Concomitant]
  4. ZOLOFT(SERTRALINE HYDROCHLORIDE) [Concomitant]
  5. VALTREX(VALACICLOVIR HYDROCHLORIDE) [Concomitant]
  6. LORATADINE(LORATADINE) [Concomitant]
  7. LORAZEPAM(LORAZEPAM) [Concomitant]
  8. TUMERIC(TUMERIC) [Concomitant]
  9. ALBUTEROL(SALBUTAMOL) [Concomitant]

REACTIONS (1)
  - Full blood count decreased [None]
